FAERS Safety Report 18135765 (Version 1)
Quarter: 2020Q3

REPORT INFORMATION
  Report Type: Spontaneous
  Country: US (occurrence: US)
  Receive Date: 20200811
  Receipt Date: 20200811
  Transmission Date: 20201103
  Serious: No
  Sender: FDA-Public Use
  Company Number: US-ROCHE-2567690

PATIENT
  Sex: Male

DRUGS (1)
  1. BONIVA [Suspect]
     Active Substance: IBANDRONATE SODIUM
     Indication: BONE DENSITY ABNORMAL
     Route: 065
     Dates: start: 20200311

REACTIONS (3)
  - No adverse event [Unknown]
  - Intentional product use issue [Unknown]
  - Off label use [Unknown]
